FAERS Safety Report 13207824 (Version 1)
Quarter: 2017Q1

REPORT INFORMATION
  Report Type: Spontaneous
  Country: IL (occurrence: IL)
  Receive Date: 20170209
  Receipt Date: 20170209
  Transmission Date: 20170428
  Serious: Yes (Other)
  Sender: FDA-Public Use
  Company Number: IL-ALEXION-A201701115

PATIENT
  Age: 3 Year
  Sex: Female
  Weight: 13 kg

DRUGS (2)
  1. SOLIRIS [Suspect]
     Active Substance: ECULIZUMAB
     Dosage: 300 MG, UNK
     Route: 042
  2. SOLIRIS [Suspect]
     Active Substance: ECULIZUMAB
     Indication: HAEMOLYTIC URAEMIC SYNDROME
     Dosage: 600 MG, QW
     Route: 042
     Dates: start: 2017

REACTIONS (6)
  - Blood creatinine abnormal [Unknown]
  - Urine output decreased [Unknown]
  - Pulmonary oedema [Unknown]
  - Drug ineffective [Not Recovered/Not Resolved]
  - Cardiac failure [Unknown]
  - Fluid overload [Unknown]
